FAERS Safety Report 4915358-4 (Version None)
Quarter: 2006Q1

REPORT INFORMATION
  Report Type: 
  Country: None (occurrence: None)
  Receive Date: 20060217
  Receipt Date: 20050322
  Transmission Date: 20060701
  Serious: Yes (Hospitalization)
  Sender: FDA-Public Use
  Company Number: JP-BRACCO-BRO-008455

PATIENT
  Age: 72 Year
  Sex: Female

DRUGS (4)
  1. IOPAMIRON [Suspect]
     Indication: PANCREATIC DISORDER
     Route: 042
  2. IOPAMIRON [Suspect]
     Indication: COMPUTERISED TOMOGRAM
     Route: 042
  3. SULFAMETHOXAZOLE + TRIMETHOPRIM [Suspect]
     Route: 048
  4. PREDNISOLONE [Concomitant]
     Route: 050

REACTIONS (2)
  - LYMPHOCYTE STIMULATION TEST POSITIVE [None]
  - TOXIC EPIDERMAL NECROLYSIS [None]
